FAERS Safety Report 12053771 (Version 3)
Quarter: 2016Q1

REPORT INFORMATION
  Report Type: Spontaneous
  Country: JP (occurrence: JP)
  Receive Date: 20160209
  Receipt Date: 20160304
  Transmission Date: 20160526
  Serious: Yes (Death, Other)
  Sender: FDA-Public Use
  Company Number: JP-GILEAD-2016-0196242

PATIENT
  Age: 74 Year
  Sex: Female
  Weight: 61 kg

DRUGS (12)
  1. HARVONI [Suspect]
     Active Substance: LEDIPASVIR\SOFOSBUVIR
     Indication: CHRONIC HEPATITIS C
     Dosage: 1 DF, QD
     Route: 048
     Dates: start: 20151128, end: 20151228
  2. URSO [Concomitant]
     Active Substance: URSODIOL
     Dosage: 1 DF, TID
     Route: 048
  3. ANTEBATE [Concomitant]
     Active Substance: BETAMETHASONE DIPROPIONATE
     Indication: ECZEMA
     Dosage: UNK, BID
     Route: 003
  4. AZULAVINE [Concomitant]
     Dosage: UNK, TID
     Route: 031
  5. SENNA [Concomitant]
     Active Substance: SENNA LEAF\SENNOSIDES\SENNOSIDES A AND B
     Dosage: 1 G, QHS
     Route: 048
  6. ALLEGRA [Concomitant]
     Active Substance: FEXOFENADINE HYDROCHLORIDE
     Dosage: 1 DF, BID
     Route: 048
     Dates: start: 20151225
  7. HALCION [Concomitant]
     Active Substance: TRIAZOLAM
     Dosage: 1 DF, QHS
     Route: 048
  8. NU-LOTAN [Concomitant]
     Active Substance: LOSARTAN POTASSIUM
     Dosage: 1 DF, QD
     Route: 048
  9. PL [Concomitant]
     Active Substance: ACETAMINOPHEN\CAFFEINE\PROMETHAZINE\SALICYLAMIDE
     Dosage: 3 G, TID
     Route: 048
     Dates: start: 20151225
  10. ADALAT [Concomitant]
     Active Substance: NIFEDIPINE
     Dosage: 1 DF, QD
     Route: 048
  11. EBRANTIL                           /00631801/ [Concomitant]
     Active Substance: URAPIDIL
     Dosage: 1 DF, BID
     Route: 048
  12. PURSENID [Concomitant]
     Dosage: 1 DF, QHS
     Route: 048

REACTIONS (3)
  - Pneumonia [Fatal]
  - Subarachnoid haemorrhage [Fatal]
  - Mallory-Weiss syndrome [Fatal]

NARRATIVE: CASE EVENT DATE: 20151227
